FAERS Safety Report 17462385 (Version 11)
Quarter: 2022Q4

REPORT INFORMATION
  Report Type: Report from Study
  Country: JP (occurrence: JP)
  Receive Date: 20200226
  Receipt Date: 20221212
  Transmission Date: 20230113
  Serious: Yes (Hospitalization)
  Sender: FDA-Public Use
  Company Number: JP-ABBVIE-19K-087-2935316-00

PATIENT
  Age: 73 Year
  Sex: Female
  Weight: 42 kg

DRUGS (4)
  1. CARBIDOPA\LEVODOPA [Suspect]
     Active Substance: CARBIDOPA\LEVODOPA
     Indication: Parkinson^s disease
     Dosage: MD: 12 ML, CD: 3.2 ML/HR ?- 16 HRS, ED: 0 ML/UNIT ?- 0
     Route: 050
     Dates: start: 20190712, end: 20200818
  2. CARBIDOPA\LEVODOPA [Suspect]
     Active Substance: CARBIDOPA\LEVODOPA
  3. SUVOREXANT [Concomitant]
     Active Substance: SUVOREXANT
     Indication: Product used for unknown indication
  4. ROTIGOTINE [Concomitant]
     Active Substance: ROTIGOTINE
     Indication: Parkinson^s disease
     Dosage: 13.5 MILLIGRAM
     Route: 062

REACTIONS (34)
  - Device occlusion [Unknown]
  - Off label use [Unknown]
  - Back pain [Unknown]
  - Arthralgia [Unknown]
  - Bedridden [Unknown]
  - Hypoacusis [Unknown]
  - Torticollis [Unknown]
  - Posture abnormal [Unknown]
  - Lordosis [Unknown]
  - Productive cough [Unknown]
  - Mobility decreased [Unknown]
  - Gait disturbance [Unknown]
  - Neck pain [Unknown]
  - Dermatitis contact [Unknown]
  - Fatigue [Unknown]
  - Weight decreased [Unknown]
  - Asthenia [Unknown]
  - Dyspnoea [Unknown]
  - Malaise [Unknown]
  - Therapeutic product effect decreased [Unknown]
  - Dizziness [Unknown]
  - Insomnia [Unknown]
  - Medical device pain [Unknown]
  - Stoma site hypergranulation [Not Recovered/Not Resolved]
  - Stoma site pain [Unknown]
  - Abdominal pain [Unknown]
  - Confusional state [Unknown]
  - Stoma site inflammation [Unknown]
  - Stoma site erythema [Unknown]
  - Stoma site oedema [Unknown]
  - Stoma site discharge [Unknown]
  - Dyskinesia [Unknown]
  - Drug ineffective [Unknown]
  - Stoma site abscess [Unknown]

NARRATIVE: CASE EVENT DATE: 20190101
